FAERS Safety Report 5658647-0 (Version None)
Quarter: 2008Q1

REPORT INFORMATION
  Report Type: 
  Country: None (occurrence: None)
  Receive Date: 20080310
  Receipt Date: 20070321
  Transmission Date: 20080703
  Serious: No
  Sender: FDA-Public Use
  Company Number: US-BAYER-200710886BCC

PATIENT
  Sex: Female

DRUGS (1)
  1. ALEVE [Suspect]
     Indication: HEADACHE
     Dosage: TOTAL DAILY DOSE: 220 MG  UNIT DOSE: 220 MG
     Route: 048
     Dates: start: 20070320

REACTIONS (5)
  - ANGIOEDEMA [None]
  - MEDICATION RESIDUE [None]
  - ORAL DISCOMFORT [None]
  - RETCHING [None]
  - SWELLING FACE [None]
